FAERS Safety Report 14575364 (Version 1)
Quarter: 2018Q1

REPORT INFORMATION
  Report Type: Spontaneous
  Country: US (occurrence: US)
  Receive Date: 20180227
  Receipt Date: 20180227
  Transmission Date: 20180509
  Serious: No
  Sender: FDA-Public Use
  Company Number: US-ROCHE-2005547

PATIENT
  Age: 48 Year
  Sex: Female

DRUGS (1)
  1. XOLAIR [Suspect]
     Active Substance: OMALIZUMAB
     Indication: COMPLEMENT FACTOR ABNORMAL
     Route: 058
     Dates: start: 20170910

REACTIONS (5)
  - Pharyngeal oedema [Recovered/Resolved]
  - Peripheral swelling [Recovered/Resolved]
  - Intentional product use issue [Unknown]
  - Swollen tongue [Recovered/Resolved]
  - Off label use [Unknown]

NARRATIVE: CASE EVENT DATE: 20170929
